FAERS Safety Report 19240639 (Version 1)
Quarter: 2021Q2

REPORT INFORMATION
  Report Type: Spontaneous
  Country: US (occurrence: US)
  Receive Date: 20210511
  Receipt Date: 20210511
  Transmission Date: 20210717
  Serious: No
  Sender: FDA-Public Use
  Company Number: US-ASTRAZENECA-2021A345970

PATIENT
  Sex: Male
  Weight: 136.1 kg

DRUGS (1)
  1. BYDUREON BCISE [Suspect]
     Active Substance: EXENATIDE
     Indication: TYPE 2 DIABETES MELLITUS
     Route: 058
     Dates: start: 20181012

REACTIONS (4)
  - Drug delivery system malfunction [Unknown]
  - Blood glucose increased [Unknown]
  - Device leakage [Unknown]
  - Incorrect dose administered by device [Not Recovered/Not Resolved]
